FAERS Safety Report 6730065-3 (Version None)
Quarter: 2010Q2

REPORT INFORMATION
  Report Type: 
  Country: None (occurrence: None)
  Receive Date: 20100518
  Receipt Date: 20100511
  Transmission Date: 20101027
  Serious: Yes (Hospitalization)
  Sender: FDA-Public Use
  Company Number: US-PERRIGO-10US009544

PATIENT
  Age: 9 Month
  Sex: Male
  Weight: 9.07 kg

DRUGS (1)
  1. IBUPROFEN CHILD BUBBLEGUM 20 MG/ML 166 [Suspect]
     Indication: PYREXIA
     Dosage: 50 MG, SINGLE
     Route: 048
     Dates: start: 20100506, end: 20100506

REACTIONS (4)
  - CONDITION AGGRAVATED [None]
  - DRUG INEFFECTIVE [None]
  - OFF LABEL USE [None]
  - RESPIRATORY RATE INCREASED [None]
